FAERS Safety Report 4340451-7 (Version None)
Quarter: 2004Q2

REPORT INFORMATION
  Report Type: 
  Country: None (occurrence: None)
  Receive Date: 20040414
  Receipt Date: 20040330
  Transmission Date: 20050107
  Serious: Yes (Death, Hospitalization)
  Sender: FDA-Public Use
  Company Number: MEDI-0001607

PATIENT
  Age: 62 Year
  Sex: Male
  Weight: 61.2356 kg

DRUGS (4)
  1. ETHYOL [Suspect]
     Indication: CHEMOTHERAPY
     Dosage: 500 MG
     Dates: start: 20020402, end: 20020507
  2. CARBOPLATIN [Concomitant]
  3. TAXOL [Concomitant]
  4. FLUOROURACIL [Concomitant]

REACTIONS (9)
  - ACUTE RESPIRATORY DISTRESS SYNDROME [None]
  - ANOREXIA [None]
  - DRUG TOXICITY [None]
  - FALL [None]
  - ILEUS [None]
  - MALNUTRITION [None]
  - PNEUMONIA PNEUMOCOCCAL [None]
  - SEPSIS [None]
  - SPINAL COMPRESSION FRACTURE [None]
